FAERS Safety Report 9715257 (Version 1)
Quarter: 2013Q4

REPORT INFORMATION
  Report Type: Spontaneous
  Country: US (occurrence: US)
  Receive Date: 20131126
  Receipt Date: 20131126
  Transmission Date: 20140711
  Serious: Yes (Hospitalization, Other)
  Sender: FDA-Public Use
  Company Number: US-AMGEN-USASP2013082076

PATIENT
  Age: 48 Year
  Sex: Female

DRUGS (1)
  1. PROLIA [Suspect]
     Indication: OSTEOPENIA
     Route: 065

REACTIONS (11)
  - Diverticulitis [Unknown]
  - Investigation [Unknown]
  - Diverticulum [Unknown]
  - Abdominal pain upper [Unknown]
  - Urticaria [Recovered/Resolved]
  - Vitamin D decreased [Unknown]
  - Stress [Unknown]
  - Diarrhoea [Unknown]
  - Epigastric discomfort [Unknown]
  - Gastric ulcer [Unknown]
  - Pruritus [Unknown]
